FAERS Safety Report 8267089-3 (Version None)
Quarter: 2012Q2

REPORT INFORMATION
  Report Type: 
  Country: None (occurrence: None)
  Receive Date: 20120409
  Receipt Date: 20120328
  Transmission Date: 20120825
  Serious: Yes (Hospitalization, Other)
  Sender: FDA-Public Use
  Company Number: US-ELI_LILLY_AND_COMPANY-US201101007575

PATIENT
  Sex: Female
  Weight: 50.794 kg

DRUGS (10)
  1. OXYGEN [Concomitant]
  2. FORTEO [Suspect]
     Dosage: 20 UG, QD
     Route: 058
     Dates: start: 20111010
  3. FORTEO [Suspect]
     Dosage: 20 UG, QD
     Route: 058
     Dates: end: 20110926
  4. FORTEO [Suspect]
     Dosage: 20 UG, QD
     Route: 058
  5. FORTEO [Suspect]
     Dosage: 20 UG, QD
     Route: 058
  6. VITAMIN D [Concomitant]
  7. FORTEO [Suspect]
     Indication: OSTEOPOROSIS
     Dosage: 20 UG, DAILY (1/D)
     Route: 058
  8. FORTEO [Suspect]
     Dosage: 20 UG, QD
     Route: 058
  9. FORTEO [Suspect]
     Dosage: 20 UG, QD
     Route: 058
  10. CALCIUM CARBONATE [Concomitant]

REACTIONS (9)
  - THROMBOSIS [None]
  - BACK PAIN [None]
  - FEMUR FRACTURE [None]
  - LIMB OPERATION [None]
  - FEAR [None]
  - BONE DENSITY DECREASED [None]
  - INJECTION SITE HAEMATOMA [None]
  - FALL [None]
  - INJECTION SITE HAEMORRHAGE [None]
